FAERS Safety Report 26166611 (Version 1)
Quarter: 2025Q4

REPORT INFORMATION
  Report Type: Spontaneous
  Country: US (occurrence: US)
  Receive Date: 20251217
  Receipt Date: 20251217
  Transmission Date: 20260117
  Serious: No
  Sender: ROCHE
  Company Number: US-ROCHE-10000460383

PATIENT
  Sex: Male

DRUGS (3)
  1. ACTEMRA ACTPEN [Suspect]
     Active Substance: TOCILIZUMAB
     Indication: Rheumatoid arthritis
     Dosage: 162 MG/0.9 M
     Route: 058
     Dates: start: 202403
  2. MACITENTAN\TADALAFIL [Concomitant]
     Active Substance: MACITENTAN\TADALAFIL
  3. YUTREPIA [Concomitant]
     Active Substance: TREPROSTINIL SODIUM

REACTIONS (2)
  - Throat irritation [Unknown]
  - Dysphonia [Unknown]
